FAERS Safety Report 4640865-1 (Version None)
Quarter: 2005Q2

REPORT INFORMATION
  Report Type: 
  Country: None (occurrence: None)
  Receive Date: 20050420
  Receipt Date: 20050414
  Transmission Date: 20051028
  Serious: Yes (Life-Threatening)
  Sender: FDA-Public Use
  Company Number: US-MERCK-0504USA02263

PATIENT
  Age: 85 Year
  Sex: Female

DRUGS (4)
  1. VIOXX [Suspect]
     Indication: INTERVERTEBRAL DISC DISPLACEMENT
     Route: 048
     Dates: start: 19980101
  2. VIOXX [Suspect]
     Indication: REPETITIVE STRAIN INJURY
     Route: 048
     Dates: start: 19980101
  3. PREMARIN [Concomitant]
     Route: 065
  4. CALCIUM (UNSPECIFIED) [Concomitant]
     Route: 065

REACTIONS (2)
  - ATRIAL FIBRILLATION [None]
  - HYPERTENSION [None]
